FAERS Safety Report 8920086 (Version 1)
Quarter: 2012Q4

REPORT INFORMATION
  Report Type: 
  Country: CA (occurrence: CA)
  Receive Date: 20121121
  Receipt Date: 20121121
  Transmission Date: 20130627
  Serious: Yes (Other)
  Sender: FDA-Public Use
  Company Number: CA-BRISTOL-MYERS SQUIBB COMPANY-17125865

PATIENT
  Age: 44 Year
  Sex: Female
  Weight: 93.42 kg

DRUGS (3)
  1. ONGLYZA TABS 5 MG [Suspect]
     Dosage: film coated tabs
     Route: 048
  2. RAMIPRIL [Concomitant]
  3. ACETYLSALICYLIC ACID [Concomitant]

REACTIONS (6)
  - Drug hypersensitivity [Recovered/Resolved]
  - Dehydration [Recovered/Resolved]
  - Dyspnoea [Recovered/Resolved]
  - Dry mouth [Recovered/Resolved]
  - Hypertension [Recovered/Resolved]
  - Oedema peripheral [Recovered/Resolved]
